FAERS Safety Report 4266737-2 (Version None)
Quarter: 2004Q1

REPORT INFORMATION
  Report Type: 
  Country: None (occurrence: None)
  Receive Date: 20040108
  Receipt Date: 20031209
  Transmission Date: 20041129
  Serious: Yes (Other)
  Sender: FDA-Public Use
  Company Number: JP-GLAXOSMITHKLINE-B0318218A

PATIENT
  Sex: Male
  Weight: 3 kg

DRUGS (5)
  1. PAXIL [Suspect]
     Dates: start: 20020801
  2. METHYLPHENIDATE HCL [Concomitant]
     Dates: start: 20020801
  3. ALPRAZOLAM [Concomitant]
     Dates: start: 20020801
  4. FLUNITRAZEPAM [Concomitant]
     Dates: start: 20020801
  5. OXYTOCIN [Concomitant]

REACTIONS (4)
  - APNOEA [None]
  - DRUG EXPOSURE DURING PREGNANCY [None]
  - DRUG WITHDRAWAL SYNDROME NEONATAL [None]
  - HYPOTONIA [None]
